FAERS Safety Report 9319559 (Version 5)
Quarter: 2013Q4

REPORT INFORMATION
  Report Type: Spontaneous
  Country: US (occurrence: US)
  Receive Date: 20130530
  Receipt Date: 20131230
  Transmission Date: 20140711
  Serious: Yes (Other)
  Sender: FDA-Public Use
  Company Number: US-GLAXOSMITHKLINE-A1007147A

PATIENT
  Age: 32 Year
  Sex: Female

DRUGS (2)
  1. FLOLAN [Suspect]
     Indication: PULMONARY ARTERIAL HYPERTENSION
     Dosage: 14.7NGKM CONTINUOUS
     Route: 042
     Dates: start: 20100708
  2. COUMADIN [Concomitant]

REACTIONS (5)
  - Urinary tract infection [Unknown]
  - Bronchitis [Unknown]
  - Fungal infection [Unknown]
  - Influenza [Recovering/Resolving]
  - Transplant [Unknown]
